FAERS Safety Report 14935997 (Version 4)
Quarter: 2018Q3

REPORT INFORMATION
  Report Type: Spontaneous
  Country: US (occurrence: US)
  Receive Date: 20180524
  Receipt Date: 20180814
  Transmission Date: 20181010
  Serious: No
  Sender: FDA-Public Use
  Company Number: PHEH2018US020180

PATIENT
  Sex: Female

DRUGS (3)
  1. AFINITOR [Suspect]
     Active Substance: EVEROLIMUS
     Indication: RENAL CANCER
     Dosage: 2.5 MG, QD
     Route: 048
     Dates: start: 20180308
  2. LENVATINIB [Suspect]
     Active Substance: LENVATINIB
     Indication: RENAL CANCER
     Dosage: 8 MG, QD
     Route: 048
  3. AFINITOR [Suspect]
     Active Substance: EVEROLIMUS
     Dosage: 2.5 MG, QD
     Route: 047

REACTIONS (6)
  - Oedema peripheral [Recovered/Resolved]
  - Blood pressure abnormal [Recovering/Resolving]
  - Periorbital oedema [Unknown]
  - Fatigue [Recovered/Resolved]
  - Incorrect route of drug administration [Unknown]
  - Peripheral swelling [Unknown]
